FAERS Safety Report 10153098 (Version 1)
Quarter: 2014Q2

REPORT INFORMATION
  Report Type: Spontaneous
  Country: CH (occurrence: CH)
  Receive Date: 20140505
  Receipt Date: 20140505
  Transmission Date: 20141212
  Serious: Yes (Hospitalization)
  Sender: FDA-Public Use
  Company Number: CH-BRISTOL-MYERS SQUIBB COMPANY-20680120

PATIENT
  Age: 50 Year
  Sex: Male

DRUGS (16)
  1. ABILIFY TABS 10 MG [Suspect]
     Indication: SCHIZOPHRENIA, CATATONIC TYPE
     Route: 048
  2. ABILIFY TABS 10 MG [Interacting]
     Indication: DEPRESSION
     Route: 048
  3. ABILIFY TABS 10 MG [Interacting]
     Indication: AUTISM
     Route: 048
  4. FLOXYFRAL [Interacting]
     Indication: SCHIZOPHRENIA, CATATONIC TYPE
     Route: 048
  5. FLOXYFRAL [Interacting]
     Indication: AUTISM
     Route: 048
  6. FLOXYFRAL [Interacting]
     Indication: DEPRESSION
     Route: 048
  7. CLOPIN [Interacting]
     Indication: SCHIZOPHRENIA, CATATONIC TYPE
     Dosage: CLOPIN ECO 100.STRENGTH: 100MG TABS
     Route: 048
  8. CLOPIN [Interacting]
     Indication: AUTISM
     Dosage: CLOPIN ECO 100.STRENGTH: 100MG TABS
     Route: 048
  9. CLOPIN [Interacting]
     Indication: DEPRESSION
     Dosage: CLOPIN ECO 100.STRENGTH: 100MG TABS
     Route: 048
  10. INDERAL [Interacting]
     Indication: AUTISM
     Dosage: STRENGTH: 40 MG TABS
     Route: 048
  11. INDERAL [Interacting]
     Indication: SCHIZOPHRENIA, CATATONIC TYPE
     Dosage: STRENGTH: 40 MG TABS
     Route: 048
  12. INDERAL [Interacting]
     Indication: DEPRESSION
     Dosage: STRENGTH: 40 MG TABS
     Route: 048
  13. INDERAL [Interacting]
     Indication: TACHYCARDIA
     Dosage: STRENGTH: 40 MG TABS
     Route: 048
  14. DIPHENHYDRAMINE HCL [Suspect]
     Indication: AUTISM
     Dosage: STRENGTH : 50 MG TABS
     Route: 048
  15. DIPHENHYDRAMINE HCL [Suspect]
     Indication: SCHIZOPHRENIA, CATATONIC TYPE
     Dosage: STRENGTH : 50 MG TABS
     Route: 048
  16. DIPHENHYDRAMINE HCL [Suspect]
     Indication: DEPRESSION
     Dosage: STRENGTH : 50 MG TABS
     Route: 048

REACTIONS (4)
  - Rebound tachycardia [Recovering/Resolving]
  - Pulmonary embolism [Recovering/Resolving]
  - Drug interaction [Recovering/Resolving]
  - Tachycardia [Recovering/Resolving]
